APPROVED DRUG PRODUCT: HALOTESTIN
Active Ingredient: FLUOXYMESTERONE
Strength: 5MG
Dosage Form/Route: TABLET;ORAL
Application: N010611 | Product #006
Applicant: PHARMACIA AND UPJOHN CO
Approved: Approved Prior to Jan 1, 1982 | RLD: No | RS: No | Type: DISCN